FAERS Safety Report 4579705-8 (Version None)
Quarter: 2005Q1

REPORT INFORMATION
  Report Type: 
  Country: None (occurrence: None)
  Receive Date: 20050214
  Receipt Date: 20050112
  Transmission Date: 20050727
  Serious: Yes (Other)
  Sender: FDA-Public Use
  Company Number: FR-ABBOTT-05P-056-0287122-00

PATIENT
  Age: 38 Year
  Sex: Female

DRUGS (6)
  1. ERYTHROCINE [Suspect]
     Indication: LUNG DISORDER
     Route: 048
     Dates: start: 20040627, end: 20040711
  2. MIRTAZAPINE [Suspect]
     Indication: DEPRESSION
     Route: 048
     Dates: start: 20040601
  3. PRAZEPAM [Suspect]
     Indication: DEPRESSION
     Route: 048
     Dates: start: 20040601
  4. AMOXICILLIN [Suspect]
     Indication: LUNG DISORDER
     Route: 048
     Dates: start: 20040627, end: 20040711
  5. ZUCLOPENTHIXOL [Suspect]
     Indication: DEPRESSION
     Route: 048
     Dates: start: 20040601
  6. FLUMAZENIL [Suspect]
     Indication: DRUG USE FOR UNKNOWN INDICATION
     Route: 042
     Dates: start: 20040601

REACTIONS (5)
  - ABORTION INDUCED [None]
  - CHORIOAMNIONITIS [None]
  - DRUG EXPOSURE DURING PREGNANCY [None]
  - MECONIUM ABNORMAL [None]
  - MULTIPLE CONGENITAL ABNORMALITIES [None]
